FAERS Safety Report 8334950 (Version 3)
Quarter: 2013Q3

REPORT INFORMATION
  Report Type: Report from Study
  Country: DK (occurrence: DK)
  Receive Date: 20120112
  Receipt Date: 20130903
  Transmission Date: 20140515
  Serious: Yes (Hospitalization)
  Sender: FDA-Public Use
  Company Number: PHHO2012DK000798

PATIENT
  Age: 57 Year
  Sex: Female
  Weight: 78.7 kg

DRUGS (2)
  1. ALISKIREN [Suspect]
     Indication: CARDIOVASCULAR DISORDER
     Route: 048
     Dates: start: 20081216, end: 201004
  2. ALENDRONATE [Suspect]

REACTIONS (1)
  - Azotaemia [Recovering/Resolving]
